FAERS Safety Report 20909708 (Version 2)
Quarter: 2022Q2

REPORT INFORMATION
  Report Type: Spontaneous
  Country: US (occurrence: US)
  Receive Date: 20220603
  Receipt Date: 20220623
  Transmission Date: 20220721
  Serious: No
  Sender: FDA-Public Use
  Company Number: US-BRISTOL-MYERS SQUIBB COMPANY-2022-035505

PATIENT
  Age: 74 Year
  Sex: Male
  Weight: 60.327 kg

DRUGS (2)
  1. REVLIMID [Suspect]
     Active Substance: LENALIDOMIDE
     Indication: Plasma cell myeloma
     Dosage: 21 ON 7 OFF
     Route: 048
     Dates: start: 20220322
  2. REVLIMID [Suspect]
     Active Substance: LENALIDOMIDE
     Dosage: FREQUENCY-3W AND 1 W OFF
     Route: 048
     Dates: start: 20220301, end: 20220601

REACTIONS (6)
  - Pain [Unknown]
  - Muscle spasms [Unknown]
  - Dyspnoea [Unknown]
  - Myalgia [Unknown]
  - Respiration abnormal [Unknown]
  - Respiration abnormal [Unknown]
